FAERS Safety Report 4722828-0 (Version None)
Quarter: 2005Q3

REPORT INFORMATION
  Report Type: 
  Country: None (occurrence: None)
  Receive Date: 20050722
  Receipt Date: 20050718
  Transmission Date: 20060218
  Serious: Yes (Death)
  Sender: FDA-Public Use
  Company Number: US-GLAXOSMITHKLINE-A0566686A

PATIENT
  Age: 59 Year
  Sex: Female

DRUGS (4)
  1. LAMICTAL [Suspect]
     Indication: DRUG USE FOR UNKNOWN INDICATION
     Route: 048
  2. QUETIAPINE [Concomitant]
  3. CYMBALTA [Concomitant]
  4. CARBAMAZEPINE [Concomitant]

REACTIONS (2)
  - CARDIAC ARREST [None]
  - DRUG SCREEN POSITIVE [None]
